FAERS Safety Report 5166510-7 (Version None)
Quarter: 2006Q4

REPORT INFORMATION
  Report Type: 
  Country: None (occurrence: None)
  Receive Date: 20061207
  Receipt Date: 20060913
  Transmission Date: 20070319
  Serious: Yes (Disabling, Other)
  Sender: FDA-Public Use
  Company Number: FR-BRISTOL-MYERS SQUIBB COMPANY-13509310

PATIENT
  Age: 61 Year
  Sex: Female

DRUGS (4)
  1. VIDEX [Suspect]
     Indication: ACQUIRED IMMUNODEFICIENCY SYNDROME
     Route: 048
     Dates: start: 20040101
  2. REYATAZ [Concomitant]
  3. NORVIR [Concomitant]
  4. VIREAD [Concomitant]

REACTIONS (2)
  - INJECTION SITE INFLAMMATION [None]
  - PAIN IN EXTREMITY [None]
